FAERS Safety Report 8976077 (Version 2)
Quarter: 2014Q2

REPORT INFORMATION
  Report Type: Report from Study
  Country: GB (occurrence: AT)
  Receive Date: 20121220
  Receipt Date: 20131018
  Transmission Date: 20141212
  Serious: Yes (Hospitalization)
  Sender: FDA-Public Use
  Company Number: AT-PFIZER INC-AT-WYE-H09845709

PATIENT
  Age: 69 Year
  Sex: Female

DRUGS (44)
  1. METOPROLOL [Concomitant]
     Dosage: 5 MG, SINGLE
     Route: 042
     Dates: start: 20030925
  2. MOXONIDINE [Concomitant]
     Dosage: 0.4 MG, 1X/DAY
     Route: 048
     Dates: start: 20031001
  3. NITRENDIPINE [Concomitant]
     Dosage: 10 MG, SINGLE
     Route: 048
     Dates: start: 20030930
  4. PANTOLOC [Concomitant]
     Dosage: 40 MG, 1X/DAY
     Route: 065
     Dates: start: 200310
  5. PENICILLIN NOS [Concomitant]
     Dosage: 6 G, SINGLE
     Route: 042
     Dates: start: 20030924
  6. SIMVASTATIN [Concomitant]
     Dosage: 40 MG, 1X/DAY
     Route: 048
     Dates: start: 20031117, end: 20040804
  7. CO-TRIMOXAZOLE [Concomitant]
     Dosage: 1 G, ALTERNATE DAY
     Route: 048
     Dates: start: 20030926, end: 20040407
  8. FLUVASTATIN [Concomitant]
     Dosage: 80 MG, 1X/DAY
     Route: 048
     Dates: start: 20040804, end: 20040901
  9. FLUVASTATIN [Concomitant]
     Dosage: 80 MG, 1X/DAY
     Route: 048
     Dates: start: 20050623
  10. VALGANCICLOVIR HYDROCHLORIDE [Concomitant]
     Dosage: 450 MG, 2X/DAY
     Route: 048
     Dates: start: 20031219, end: 20040201
  11. VALGANCICLOVIR HYDROCHLORIDE [Concomitant]
     Dosage: 450 MG, 1X/DAY
     Route: 048
     Dates: start: 20040202, end: 20040407
  12. SIROLIMUS [Suspect]
     Indication: PROPHYLAXIS AGAINST TRANSPLANT REJECTION
     Dosage: 1 MG, 1X/DAY
     Route: 048
     Dates: start: 20030924, end: 20030930
  13. SIROLIMUS [Suspect]
     Dosage: 1 MG, 1X/DAY
     Route: 048
     Dates: start: 20031001, end: 20031218
  14. SIROLIMUS [Suspect]
     Dosage: 1 MG, ALTERNATE DAY
     Route: 048
     Dates: start: 20031219, end: 20031228
  15. SIROLIMUS [Suspect]
     Dosage: 1 MG, 1X/DAY
     Route: 048
     Dates: start: 20031229, end: 20050404
  16. SIROLIMUS [Suspect]
     Dosage: 3 MG, 4X/DAY
     Dates: start: 20050623, end: 20051003
  17. METHYLPREDNISOLONE SODIUM SUCCINATE [Suspect]
     Indication: PROPHYLAXIS AGAINST TRANSPLANT REJECTION
     Dosage: 500 MG, SINGLE
     Route: 042
     Dates: start: 20030924
  18. METHYLPREDNISOLONE SODIUM SUCCINATE [Suspect]
     Dosage: 125 MG, SINGLE
     Route: 042
     Dates: start: 20030925
  19. DACLIZUMAB [Suspect]
     Indication: PROPHYLAXIS AGAINST TRANSPLANT REJECTION
     Dosage: 100 MG, SINGLE
     Route: 042
     Dates: start: 20030924
  20. DACLIZUMAB [Suspect]
     Dosage: 50 MG, EVERY TWO WEEKS
     Route: 042
     Dates: start: 20031008
  21. MYCOPHENOLATE MOFETIL [Suspect]
     Indication: PROPHYLAXIS AGAINST TRANSPLANT REJECTION
     Dosage: 1 G, 1X/DAY
     Route: 048
     Dates: start: 20030924, end: 20030924
  22. MYCOPHENOLATE MOFETIL [Suspect]
     Dosage: 1 G, 2X/DAY
     Route: 048
     Dates: start: 20030925, end: 20030928
  23. MYCOPHENOLATE MOFETIL [Suspect]
     Dosage: 0.75 G, 2X/DAY
     Route: 048
     Dates: start: 20030929, end: 20030929
  24. MYCOPHENOLATE MOFETIL [Suspect]
     Dosage: 0.5 G, 1X/DAY
     Route: 048
     Dates: start: 20030930, end: 20031001
  25. MYCOPHENOLATE MOFETIL [Suspect]
     Dosage: 0.5 G, 2X/DAY
     Route: 048
     Dates: start: 20031002, end: 20031005
  26. MYCOPHENOLATE MOFETIL [Suspect]
     Dosage: 0.5 G, 3X/DAY
     Route: 048
     Dates: start: 20031006, end: 20031014
  27. MYCOPHENOLATE MOFETIL [Suspect]
     Dosage: 1 G, 2X/DAY
     Route: 048
     Dates: start: 20031015, end: 20031204
  28. MYCOPHENOLATE MOFETIL [Suspect]
     Dosage: 0.5 G, 2X/DAY
     Route: 048
     Dates: start: 20031205, end: 20031211
  29. MYCOPHENOLATE MOFETIL [Suspect]
     Dosage: 1 G, 2X/DAY
     Route: 048
     Dates: start: 20031212, end: 20040104
  30. MYCOPHENOLATE MOFETIL [Suspect]
     Dosage: 0.75 MG, 2X/DAY
     Route: 048
     Dates: start: 20040105, end: 20040118
  31. MYCOPHENOLATE MOFETIL [Suspect]
     Dosage: 0.5 MG, 2X/DAY
     Route: 048
     Dates: start: 20040119, end: 20040123
  32. PREDNISOLONE [Suspect]
     Indication: PROPHYLAXIS AGAINST TRANSPLANT REJECTION
     Dosage: 5 MG, 1X/DAY
     Route: 048
     Dates: start: 20030926
  33. TACROLIMUS [Suspect]
     Indication: PROPHYLAXIS AGAINST TRANSPLANT REJECTION
     Dosage: 1.5 MG, 2X/DAY
     Route: 048
     Dates: start: 20050404, end: 20050623
  34. TACROLIMUS [Suspect]
     Dosage: 1 MG, 2X/DAY
     Route: 048
     Dates: start: 20051003
  35. AMLODIPINE [Concomitant]
     Dosage: 5 MG, 1X/DAY
     Route: 048
     Dates: start: 20030925, end: 20031205
  36. AMLODIPINE [Concomitant]
     Dosage: 5 MG, 1X/DAY
     Route: 048
     Dates: start: 20040105, end: 20040803
  37. AMLODIPINE [Concomitant]
     Dosage: 10 MG, 1X/DAY
     Route: 048
     Dates: start: 20040804, end: 20041111
  38. AMLODIPINE [Concomitant]
     Dosage: 5 MG, 1X/DAY
     Route: 048
     Dates: start: 20041112, end: 20060606
  39. CARVEDILOL [Concomitant]
     Dosage: 25 MG, 1X/DAY
     Route: 048
     Dates: start: 20030925, end: 20040104
  40. CARVEDILOL [Concomitant]
     Dosage: 25 MG, 1X/DAY
     Route: 048
     Dates: start: 20040105, end: 20051002
  41. CARVEDILOL [Concomitant]
     Dosage: 25 MG, 1X/DAY
     Route: 048
     Dates: start: 20051003
  42. FLUCLOXACILLIN [Concomitant]
     Dosage: 4 G, 2X/DAY
     Route: 048
     Dates: start: 20030924
  43. GANCICLOVIR [Concomitant]
     Dosage: 125 MG, 2X/DAY
     Route: 042
     Dates: start: 20031212, end: 20031217
  44. THYREX [Concomitant]
     Dosage: 100 MG, 1X/DAY
     Route: 048
     Dates: start: 200311

REACTIONS (5)
  - Cytomegalovirus infection [Recovered/Resolved]
  - Blood creatinine increased [Recovered/Resolved]
  - Hyponatraemia [Recovered/Resolved]
  - Hypokalaemia [Recovered/Resolved]
  - Anaemia [Recovered/Resolved]
